FAERS Safety Report 4277612-1 (Version None)
Quarter: 2004Q1

REPORT INFORMATION
  Report Type: 
  Country: None (occurrence: None)
  Receive Date: 20040121
  Receipt Date: 20040108
  Transmission Date: 20041129
  Serious: Yes (Hospitalization, Other)
  Sender: FDA-Public Use
  Company Number: 2004001749

PATIENT
  Age: 20 Year
  Sex: Male

DRUGS (2)
  1. DILANTIN [Suspect]
     Indication: CONVULSION
     Dosage: 300 MG (DAILY), ORAL
     Route: 048
     Dates: start: 20021001, end: 20031222
  2. LEVETIRACETAM (LEVETIRACETAM) [Concomitant]

REACTIONS (8)
  - CONVULSION [None]
  - INFLUENZA [None]
  - LIVER DISORDER [None]
  - MARKEDLY REDUCED DIETARY INTAKE [None]
  - PNEUMONIA [None]
  - STEVENS-JOHNSON SYNDROME [None]
  - TOXIC EPIDERMAL NECROLYSIS [None]
  - WEIGHT DECREASED [None]
